FAERS Safety Report 15499453 (Version 1)
Quarter: 2018Q4

REPORT INFORMATION
  Report Type: Spontaneous
  Country: US (occurrence: US)
  Receive Date: 20181015
  Receipt Date: 20181015
  Transmission Date: 20190205
  Serious: No
  Sender: FDA-Public Use
  Company Number: US-009507513-1809USA009462

PATIENT
  Age: 26 Year
  Sex: Female
  Weight: 54.42 kg

DRUGS (1)
  1. NEXPLANON [Suspect]
     Active Substance: ETONOGESTREL
     Indication: CONTRACEPTION
     Dosage: 1 IMPLANT FOR THREE YEARS
     Route: 059
     Dates: start: 20130402

REACTIONS (3)
  - Incorrect product administration duration [Unknown]
  - Oligomenorrhoea [Not Recovered/Not Resolved]
  - Menstruation normal [Recovered/Resolved]

NARRATIVE: CASE EVENT DATE: 20160402
